FAERS Safety Report 24932563 (Version 1)
Quarter: 2025Q1

REPORT INFORMATION
  Report Type: Report from Study
  Country: CO (occurrence: CO)
  Receive Date: 20250205
  Receipt Date: 20250205
  Transmission Date: 20250409
  Serious: No
  Sender: EXELIXIS
  Company Number: CO-IPSEN Group, Research and Development-2024-17078

PATIENT
  Sex: Male
  Weight: 84 kg

DRUGS (2)
  1. CABOMETYX [Suspect]
     Active Substance: CABOZANTINIB S-MALATE
     Indication: Renal cell carcinoma
     Dosage: 60 MG, QD (EVERY 24 HOURS)
     Route: 048
     Dates: start: 20240725, end: 20241216
  2. CABOMETYX [Suspect]
     Active Substance: CABOZANTINIB S-MALATE
     Dosage: 40 MG, QD (1 TABLET EVERY 24 HOURS)
     Route: 048
     Dates: start: 20241217

REACTIONS (8)
  - Hair colour changes [Not Recovered/Not Resolved]
  - Genital erythema [Recovered/Resolved]
  - Inguinal hernia [Recovered/Resolved]
  - Oropharyngeal pain [Recovered/Resolved]
  - Throat irritation [Recovered/Resolved]
  - Pruritus [Recovered/Resolved]
  - Erythema [Recovered/Resolved]
  - Asthenia [Recovered/Resolved]

NARRATIVE: CASE EVENT DATE: 20240101
